FAERS Safety Report 7310092-8 (Version None)
Quarter: 2011Q1

REPORT INFORMATION
  Report Type: 
  Country: None (occurrence: None)
  Receive Date: 20110224
  Receipt Date: 20110127
  Transmission Date: 20110831
  Serious: No
  Sender: FDA-Public Use
  Company Number: US-B.I. PHARMACEUTICALS,INC./RIDGEFIELD-2011-BP-03032BP

PATIENT
  Sex: Female

DRUGS (3)
  1. CARDIZEM [Concomitant]
     Indication: CARDIAC DISORDER
  2. PRADAXA [Suspect]
     Indication: ATRIAL FIBRILLATION
     Dosage: 300 MG
     Route: 048
     Dates: start: 20101216
  3. DIGOXIN [Concomitant]
     Indication: CARDIAC DISORDER

REACTIONS (3)
  - FLATULENCE [None]
  - FREQUENT BOWEL MOVEMENTS [None]
  - DIARRHOEA [None]
